FAERS Safety Report 5271767-8 (Version None)
Quarter: 2007Q1

REPORT INFORMATION
  Report Type: 
  Country: None (occurrence: None)
  Receive Date: 20061214
  Receipt Date: 20060127
  Transmission Date: 20070707
  Serious: Yes (Other)
  Sender: FDA-Public Use
  Company Number: 2006006087

PATIENT
  Sex: Male
  Weight: 99.7913 kg

DRUGS (4)
  1. BEXTRA [Suspect]
     Indication: BACK PAIN
     Dosage: 20 MG (10 MG, 2 IN 1 D), ORAL
     Route: 048
  2. ALL OTHER THERAPEUTIC PRODUCTS [Concomitant]
  3. ANTIHYPERTENSIVES [Concomitant]
  4. CHOLESTEROL- AND TRIGLYCERIDES REDUCERS [Concomitant]

REACTIONS (3)
  - MYOCARDIAL INFARCTION [None]
  - RASH [None]
  - SWELLING FACE [None]
